FAERS Safety Report 13395503 (Version 1)
Quarter: 2017Q2

REPORT INFORMATION
  Report Type: Report from Study
  Country: None (occurrence: BR)
  Receive Date: 20170403
  Receipt Date: 20170403
  Transmission Date: 20170830
  Serious: Yes (Other)
  Sender: FDA-Public Use
  Company Number: BR-ABBVIE-17K-020-1928521-00

PATIENT
  Sex: Male
  Weight: 50 kg

DRUGS (1)
  1. HUMIRA [Suspect]
     Active Substance: ADALIMUMAB
     Indication: PSORIATIC ARTHROPATHY
     Route: 058
     Dates: start: 20150227, end: 2016

REACTIONS (6)
  - Cholelithiasis [Not Recovered/Not Resolved]
  - Adverse event [Recovering/Resolving]
  - Ischaemia [Unknown]
  - Weight decreased [Recovering/Resolving]
  - Nephrolithiasis [Not Recovered/Not Resolved]
  - Hypophagia [Recovering/Resolving]

NARRATIVE: CASE EVENT DATE: 2016
